FAERS Safety Report 17488889 (Version 1)
Quarter: 2020Q1

REPORT INFORMATION
  Report Type: Spontaneous
  Country: US (occurrence: US)
  Receive Date: 20200220
  Receipt Date: 20200220
  Transmission Date: 20200409
  Serious: Yes (Hospitalization)
  Sender: FDA-Public Use
  Company Number: None

PATIENT
  Age: 60 Year
  Sex: Male
  Weight: 95 kg

DRUGS (1)
  1. WARFARIN (WARFARIN NA (EXELAN) 5MG TAB) [Suspect]
     Active Substance: WARFARIN SODIUM
     Indication: ATRIAL FIBRILLATION
     Route: 048
     Dates: start: 20190712

REACTIONS (6)
  - Enterobacter infection [None]
  - Pulmonary embolism [None]
  - Pulmonary infarction [None]
  - Haemoptysis [None]
  - International normalised ratio increased [None]
  - Bacteraemia [None]

NARRATIVE: CASE EVENT DATE: 20190911
